FAERS Safety Report 16673148 (Version 1)
Quarter: 2019Q3

REPORT INFORMATION
  Report Type: Spontaneous
  Country: US (occurrence: US)
  Receive Date: 20190806
  Receipt Date: 20190806
  Transmission Date: 20191004
  Serious: No
  Sender: FDA-Public Use
  Company Number: US-PFIZER INC-2019331254

PATIENT
  Age: 63 Year
  Sex: Female
  Weight: 78.2 kg

DRUGS (1)
  1. LEVOFLOXACIN. [Suspect]
     Active Substance: LEVOFLOXACIN
     Indication: PELVIC INFECTION
     Dosage: UNK

REACTIONS (2)
  - Musculoskeletal pain [Unknown]
  - Condition aggravated [Unknown]
